FAERS Safety Report 8273657-5 (Version None)
Quarter: 2012Q2

REPORT INFORMATION
  Report Type: 
  Country: None (occurrence: None)
  Receive Date: 20120411
  Receipt Date: 20120310
  Transmission Date: 20120825
  Serious: No
  Sender: FDA-Public Use
  Company Number: US-TEVA-327939USA

PATIENT
  Age: 57 Year
  Sex: Female

DRUGS (1)
  1. NUVIGIL [Suspect]
     Dosage: 250 MILLIGRAM;
     Route: 048

REACTIONS (3)
  - FATIGUE [None]
  - DRUG DOSE OMISSION [None]
  - FEELING ABNORMAL [None]
